FAERS Safety Report 16958571 (Version 4)
Quarter: 2020Q1

REPORT INFORMATION
  Report Type: Spontaneous
  Country: FR (occurrence: FR)
  Receive Date: 20191024
  Receipt Date: 20200124
  Transmission Date: 20200409
  Serious: Yes (Disabling, Other)
  Sender: FDA-Public Use
  Company Number: FR-AKCEA THERAPEUTICS-2019IS001705

PATIENT

DRUGS (1)
  1. TEGSEDI [Suspect]
     Active Substance: INOTERSEN SODIUM
     Indication: PRODUCT USED FOR UNKNOWN INDICATION
     Dosage: 284 MG, UNK
     Route: 065
     Dates: start: 2013

REACTIONS (17)
  - Depressed mood [Not Recovered/Not Resolved]
  - Urinary tract disorder [Unknown]
  - Poor quality sleep [Unknown]
  - Musculoskeletal disorder [Not Recovered/Not Resolved]
  - Insomnia [Not Recovered/Not Resolved]
  - Visual impairment [Unknown]
  - Pain in extremity [Unknown]
  - Paraesthesia [Recovering/Resolving]
  - Diarrhoea [Not Recovered/Not Resolved]
  - Gastrointestinal disorder [Not Recovered/Not Resolved]
  - Fatigue [Not Recovered/Not Resolved]
  - Product use issue [Recovered/Resolved]
  - Dyspepsia [Recovered/Resolved]
  - Urinary tract infection [Unknown]
  - Cystitis [Unknown]
  - Dry eye [Unknown]
  - Malaise [Not Recovered/Not Resolved]

NARRATIVE: CASE EVENT DATE: 2013
